FAERS Safety Report 21011147 (Version 1)
Quarter: 2022Q2

REPORT INFORMATION
  Report Type: Spontaneous
  Country: IT (occurrence: IT)
  Receive Date: 20220627
  Receipt Date: 20220627
  Transmission Date: 20220720
  Serious: Yes (Other)
  Sender: FDA-Public Use
  Company Number: None

PATIENT
  Age: 21 Year
  Sex: Female
  Weight: 47 kg

DRUGS (2)
  1. YAZ [Suspect]
     Active Substance: DROSPIRENONE\ETHINYL ESTRADIOL
     Indication: Polycystic ovaries
     Dosage: 0.02 ?G, QD
     Route: 048
     Dates: start: 20090101, end: 20181231
  2. FLUTAMIDE [Concomitant]
     Active Substance: FLUTAMIDE
     Dosage: 125 MG
     Route: 048

REACTIONS (5)
  - Dyspepsia [Not Recovered/Not Resolved]
  - Dyspepsia [Not Recovered/Not Resolved]
  - Headache [Not Recovered/Not Resolved]
  - Gastrooesophageal reflux disease [Not Recovered/Not Resolved]
  - Vitamin B complex deficiency [Not Recovered/Not Resolved]

NARRATIVE: CASE EVENT DATE: 20090101
